FAERS Safety Report 8665534 (Version 3)
Quarter: 2015Q4

REPORT INFORMATION
  Report Type: Spontaneous
  Country: US (occurrence: None)
  Receive Date: 20120628
  Receipt Date: 20151201
  Transmission Date: 20160305
  Serious: Yes (Hospitalization, Other)
  Sender: FDA-Public Use
  Company Number: ADR-2012-01173

PATIENT
  Sex: Female

DRUGS (2)
  1. BACLOFEN INTRATHECAL [Suspect]
     Active Substance: BACLOFEN
     Indication: MUSCLE SPASTICITY
  2. DILAUDID [Suspect]
     Active Substance: HYDROMORPHONE HYDROCHLORIDE

REACTIONS (10)
  - Incontinence [None]
  - Hypotonia [None]
  - Autoimmune disorder [None]
  - Muscle spasticity [None]
  - Sensory loss [None]
  - Vomiting [None]
  - Muscle spasms [None]
  - Abdominal discomfort [None]
  - No therapeutic response [None]
  - Pain [None]
